FAERS Safety Report 5592562-6 (Version None)
Quarter: 2008Q1

REPORT INFORMATION
  Report Type: 
  Country: None (occurrence: None)
  Receive Date: 20080111
  Receipt Date: 20071226
  Transmission Date: 20080703
  Serious: Yes (Life-Threatening, Hospitalization)
  Sender: FDA-Public Use
  Company Number: DSA_31140_2008

PATIENT
  Sex: Female

DRUGS (1)
  1. DILTIAZEM [Suspect]
     Dosage: ORAL
     Route: 048

REACTIONS (2)
  - CARDIOGENIC SHOCK [None]
  - INTENTIONAL OVERDOSE [None]
